FAERS Safety Report 23311304 (Version 1)
Quarter: 2023Q4

REPORT INFORMATION
  Report Type: Spontaneous
  Country: US (occurrence: US)
  Receive Date: 20231219
  Receipt Date: 20231219
  Transmission Date: 20240110
  Serious: No
  Sender: FDA-Public Use
  Company Number: US-ALKEM LABORATORIES LIMITED-US-ALKEM-2023-10615

PATIENT
  Age: 57 Year

DRUGS (4)
  1. EVEROLIMUS [Suspect]
     Active Substance: EVEROLIMUS
     Indication: Breast cancer
     Dosage: 5 MILLIGRAM, QOD (3 DAYS PER WEEK ON M, W, F)
     Route: 065
  2. EVEROLIMUS [Suspect]
     Active Substance: EVEROLIMUS
     Indication: Ovarian cancer
  3. NIRAPARIB [Suspect]
     Active Substance: NIRAPARIB
     Indication: Breast cancer
     Dosage: 200 MILLIGRAMS, QD (DAILY)
     Route: 065
  4. NIRAPARIB [Suspect]
     Active Substance: NIRAPARIB
     Indication: Ovarian cancer

REACTIONS (2)
  - Toxicity to various agents [Unknown]
  - Hypertension [Unknown]
